FAERS Safety Report 25099734 (Version 1)
Quarter: 2025Q1

REPORT INFORMATION
  Report Type: Spontaneous
  Country: GB (occurrence: GB)
  Receive Date: 20250320
  Receipt Date: 20250320
  Transmission Date: 20250409
  Serious: Yes (Hospitalization)
  Sender: CHEPLAPHARM
  Company Number: None

PATIENT
  Age: 55 Year
  Sex: Male

DRUGS (1)
  1. OLANZAPINE [Suspect]
     Active Substance: OLANZAPINE

REACTIONS (5)
  - Sedation [Unknown]
  - Vomiting [Unknown]
  - Aggression [Unknown]
  - Fall [Unknown]
  - Snoring [Unknown]

NARRATIVE: CASE EVENT DATE: 20250306
